FAERS Safety Report 8389120-7 (Version None)
Quarter: 2012Q2

REPORT INFORMATION
  Report Type: 
  Country: None (occurrence: None)
  Receive Date: 20120528
  Receipt Date: 20120522
  Transmission Date: 20120825
  Serious: Yes (Hospitalization)
  Sender: FDA-Public Use
  Company Number: PHHY2012DK042267

PATIENT
  Age: 46 Year
  Sex: Female

DRUGS (1)
  1. GILENYA [Suspect]
     Indication: MULTIPLE SCLEROSIS
     Dosage: UNK UKN, UNK
     Route: 048

REACTIONS (8)
  - DYSPNOEA [None]
  - PARAESTHESIA [None]
  - MALAISE [None]
  - CHROMATURIA [None]
  - NAUSEA [None]
  - VISUAL IMPAIRMENT [None]
  - PAIN [None]
  - ASTHENIA [None]
